FAERS Safety Report 18067273 (Version 5)
Quarter: 2020Q3

REPORT INFORMATION
  Report Type: Spontaneous
  Country: SK (occurrence: SK)
  Receive Date: 20200724
  Receipt Date: 20200822
  Transmission Date: 20201103
  Serious: Yes (Hospitalization, Congenital Anomaly, Other)
  Sender: FDA-Public Use
  Company Number: SK-MYLANLABS-2020M1066154

PATIENT
  Sex: Male
  Weight: 1.15 kg

DRUGS (23)
  1. INSULIN GLARGINE [Suspect]
     Active Substance: INSULIN GLARGINE
     Indication: TYPE 1 DIABETES MELLITUS
     Dosage: 30.5 IU (UNITS, BOLUS 3?4?4 UNITS)
     Route: 064
  2. INSULIN GLARGINE [Suspect]
     Active Substance: INSULIN GLARGINE
     Dosage: UNK
     Route: 064
  3. NADROPARIN [Suspect]
     Active Substance: NADROPARIN
     Indication: DIABETIC NEPHROPATHY
     Dosage: 0.4 ML, DAILY (EVERY 24 HOURS)
     Route: 064
  4. METHYLDOPA. [Suspect]
     Active Substance: METHYLDOPA
     Indication: PRODUCT USED FOR UNKNOWN INDICATION
     Dosage: 250 MG, 4X/DAY (1?1?1?1 TBL)
     Route: 064
  5. METHYLDOPA. [Suspect]
     Active Substance: METHYLDOPA
     Dosage: UNK
     Route: 064
  6. FUROSEMIDE. [Suspect]
     Active Substance: FUROSEMIDE
     Dosage: MATERNAL DOSE: 10 MG, BID
     Route: 064
  7. FUROSEMIDE. [Suspect]
     Active Substance: FUROSEMIDE
     Dosage: UNK
     Route: 064
  8. NADROPARINUM CALCICUM [Suspect]
     Active Substance: NADROPARIN CALCIUM
     Indication: PRODUCT USED FOR UNKNOWN INDICATION
     Dosage: 0.4 MILLILITER, QD
     Route: 064
  9. AMLODIPINE [Suspect]
     Active Substance: AMLODIPINE BESYLATE
     Indication: PRODUCT USED FOR UNKNOWN INDICATION
     Dosage: 5 MG, 1?0?0
     Route: 064
  10. EPOETIN THETA [Suspect]
     Active Substance: ERYTHROPOIETIN
     Indication: ANAEMIA
     Dosage: MATERNAL DOSE: 2000 IU, QW
     Route: 064
  11. ALBUMIN [Suspect]
     Active Substance: ALBUMIN HUMAN
     Dosage: 100 MILLILITER, QD
     Route: 064
  12. MAGNESIUM LACTICUM [Suspect]
     Active Substance: MAGNESIUM LACTATE
     Indication: DIABETIC NEPHROPATHY
     Dosage: 500 MG, TID
     Route: 064
  13. MAGNESIUM LACTICUM [Suspect]
     Active Substance: MAGNESIUM LACTATE
     Dosage: UNK
     Route: 064
  14. FUROSEMIDE. [Suspect]
     Active Substance: FUROSEMIDE
     Indication: PRODUCT USED FOR UNKNOWN INDICATION
     Dosage: 10 MG
     Route: 064
  15. FUROSEMIDE. [Suspect]
     Active Substance: FUROSEMIDE
     Indication: PRODUCT USED FOR UNKNOWN INDICATION
     Dosage: 5 MG, 1?1?0
     Route: 064
  16. ALBUMIN [Suspect]
     Active Substance: ALBUMIN HUMAN
     Indication: DIABETIC NEPHROPATHY
     Dosage: UNK
     Route: 064
  17. FUROSEMIDE. [Suspect]
     Active Substance: FUROSEMIDE
     Indication: DIABETIC NEPHROPATHY
     Dosage: UNK
     Route: 064
  18. METHYLDOPA. [Suspect]
     Active Substance: METHYLDOPA
     Dosage: UNK, QID (1?1?1?1)
     Route: 064
  19. METHYLDOPA. [Suspect]
     Active Substance: METHYLDOPA
     Dosage: 750 MILLIGRAM, QD (MATERNAL DOSE: 250 MG, TID )
     Route: 064
  20. EPOETIN THETA [Suspect]
     Active Substance: ERYTHROPOIETIN
     Indication: RESPIRATORY TRACT INFECTION
     Dosage: UNK
     Route: 064
  21. NADROPARINUM CALCICUM [Suspect]
     Active Substance: NADROPARIN CALCIUM
     Dosage: UNK
     Route: 064
  22. AMLODIPINE [Suspect]
     Active Substance: AMLODIPINE BESYLATE
     Dosage: 5 MG, 1?0?0
     Route: 064
  23. AMLODIPINE BESILATE [Suspect]
     Active Substance: AMLODIPINE BESYLATE
     Indication: PRODUCT USED FOR UNKNOWN INDICATION
     Dosage: 5 MILLIGRAM, QD
     Route: 064

REACTIONS (10)
  - Neonatal respiratory distress syndrome [Unknown]
  - Neonatal hypocalcaemia [Unknown]
  - Low birth weight baby [Unknown]
  - Atrial septal defect [Unknown]
  - Foetal exposure during pregnancy [Recovered/Resolved]
  - Hypophosphataemia [Unknown]
  - Premature baby [Recovered/Resolved]
  - Hypokalaemia [Unknown]
  - Bronchopulmonary dysplasia [Unknown]
  - Umbilical hernia [Unknown]
